FAERS Safety Report 25780826 (Version 3)
Quarter: 2025Q4

REPORT INFORMATION
  Report Type: Report from Study
  Country: US (occurrence: US)
  Receive Date: 20250909
  Receipt Date: 20251118
  Transmission Date: 20260118
  Serious: Yes (Other)
  Sender: ABBVIE
  Company Number: US-ABBVIE-6448000

PATIENT
  Age: 46 Year
  Sex: Female

DRUGS (2)
  1. SKYRIZI [Suspect]
     Active Substance: RISANKIZUMAB-RZAA
     Indication: Crohn^s disease
     Dosage: LAST ADMIN DATE: 2025
     Route: 058
     Dates: start: 202502
  2. SKYRIZI [Suspect]
     Active Substance: RISANKIZUMAB-RZAA
     Route: 058
     Dates: start: 202405

REACTIONS (8)
  - Fistula [Recovering/Resolving]
  - Post procedural infection [Recovering/Resolving]
  - Colostomy [Recovering/Resolving]
  - Vomiting [Unknown]
  - Pain [Unknown]
  - Sepsis [Unknown]
  - Atrial fibrillation [Unknown]
  - Suture rupture [Recovering/Resolving]

NARRATIVE: CASE EVENT DATE: 20240501
